FAERS Safety Report 4799734-9 (Version None)
Quarter: 2005Q4

REPORT INFORMATION
  Report Type: 
  Country: None (occurrence: None)
  Receive Date: 20051011
  Receipt Date: 20051011
  Transmission Date: 20060501
  Serious: Yes (Hospitalization)
  Sender: FDA-Public Use
  Company Number: None

PATIENT
  Age: 64 Year
  Sex: Male
  Weight: 97.5234 kg

DRUGS (6)
  1. CISPLATIN [Suspect]
     Indication: LUNG SQUAMOUS CELL CARCINOMA STAGE UNSPECIFIED
     Dosage: 1 DAY SECOND CYCLE FINISHED
     Dates: end: 20050223
  2. ETOPOSIDE [Suspect]
     Dosage: 3 DAYS
  3. ONDANSETRON [Concomitant]
  4. DEXAMETHASONE [Concomitant]
  5. APREPITANT [Concomitant]
  6. PROCHLORPERAZINE [Concomitant]

REACTIONS (2)
  - NAUSEA [None]
  - VOMITING [None]
